FAERS Safety Report 22833089 (Version 2)
Quarter: 2024Q2

REPORT INFORMATION
  Report Type: Spontaneous
  Country: US (occurrence: US)
  Receive Date: 20230817
  Receipt Date: 20240419
  Transmission Date: 20240716
  Serious: No
  Sender: FDA-Public Use
  Company Number: US-GSK-US2023AMR107081

PATIENT
  Sex: Male

DRUGS (4)
  1. BENLYSTA [Suspect]
     Active Substance: BELIMUMAB
     Indication: Autoinflammatory disease
     Dosage: 200 MG, WE
     Route: 058
  2. BENLYSTA [Suspect]
     Active Substance: BELIMUMAB
     Indication: Undifferentiated connective tissue disease
  3. OLUMIANT [Concomitant]
     Active Substance: BARICITINIB
     Indication: Autoinflammatory disease
     Dosage: UNK
  4. OLUMIANT [Concomitant]
     Active Substance: BARICITINIB
     Indication: Undifferentiated connective tissue disease

REACTIONS (2)
  - Product use in unapproved indication [Unknown]
  - Drug ineffective [Unknown]
